FAERS Safety Report 21547518 (Version 4)
Quarter: 2023Q1

REPORT INFORMATION
  Report Type: Spontaneous
  Country: US (occurrence: US)
  Receive Date: 20221103
  Receipt Date: 20230106
  Transmission Date: 20230417
  Serious: Yes (Hospitalization, Other)
  Sender: FDA-Public Use
  Company Number: US-Accord-284288

PATIENT
  Age: 52 Year
  Sex: Male
  Weight: 77.50 kg

DRUGS (15)
  1. GEMCITABINE [Suspect]
     Active Substance: GEMCITABINE
     Indication: Ductal adenocarcinoma of pancreas
     Dosage: 2Q3W
     Route: 042
     Dates: start: 20220602, end: 20220930
  2. PACLITAXEL [Suspect]
     Active Substance: PACLITAXEL
     Indication: Ductal adenocarcinoma of pancreas
     Dosage: 2Q3W
     Route: 042
     Dates: start: 20220602, end: 20220930
  3. PEMBROLIZUMAB [Suspect]
     Active Substance: PEMBROLIZUMAB
     Indication: Ductal adenocarcinoma of pancreas
     Dosage: 2Q3W
     Route: 042
     Dates: start: 20220602, end: 20220923
  4. DEXAMETHASONE [Concomitant]
     Active Substance: DEXAMETHASONE
     Dates: start: 20220602, end: 20221110
  5. ELIQUIS [Concomitant]
     Active Substance: APIXABAN
     Dates: start: 20220601
  6. OXYCODONE [Concomitant]
     Active Substance: OXYCODONE
     Dates: start: 20220912
  7. LEVOFLOXACIN [Concomitant]
     Active Substance: LEVOFLOXACIN
     Dates: start: 20220916, end: 20220925
  8. XTAMPZA ER [Concomitant]
     Active Substance: OXYCODONE
     Dates: start: 20220922
  9. MIRTAZAPINE [Concomitant]
     Active Substance: MIRTAZAPINE
     Dates: start: 20220922, end: 20220924
  10. BENZONATATE [Concomitant]
     Active Substance: BENZONATATE
     Dates: start: 20220922
  11. AUGMENTIN [Concomitant]
     Active Substance: AMOXICILLIN\CLAVULANATE POTASSIUM
     Dates: start: 20221017, end: 20221024
  12. PREDNISONE [Concomitant]
     Active Substance: PREDNISONE
     Dates: start: 20221017, end: 20221023
  13. PEMBROLIZUMAB [Suspect]
     Active Substance: PEMBROLIZUMAB
     Indication: Ductal adenocarcinoma of pancreas
     Dosage: 2Q3W
     Route: 042
     Dates: start: 20221110
  14. PACLITAXEL [Suspect]
     Active Substance: PACLITAXEL
     Indication: Ductal adenocarcinoma of pancreas
     Dosage: 2Q3W
     Route: 042
     Dates: start: 20221110
  15. GEMCITABINE [Suspect]
     Active Substance: GEMCITABINE
     Indication: Ductal adenocarcinoma of pancreas
     Dosage: 2Q3W
     Route: 042
     Dates: start: 20221110

REACTIONS (4)
  - Angina pectoris [Not Recovered/Not Resolved]
  - Pneumonia [Recovered/Resolved]
  - Abdominal pain [Recovered/Resolved]
  - Pancreatitis [Unknown]

NARRATIVE: CASE EVENT DATE: 20221012
